FAERS Safety Report 4750598-9 (Version None)
Quarter: 2005Q3

REPORT INFORMATION
  Report Type: 
  Country: None (occurrence: None)
  Receive Date: 20050818
  Receipt Date: 20050808
  Transmission Date: 20060218
  Serious: Yes (Other)
  Sender: FDA-Public Use
  Company Number: 2005112687

PATIENT
  Sex: Female

DRUGS (4)
  1. CELEBREX [Suspect]
     Indication: OSTEOARTHRITIS
     Dosage: 200 MG (1 D), ORAL
     Route: 048
     Dates: start: 20050517, end: 20050619
  2. LEVOTHYROXINE SODIUM [Concomitant]
  3. AVANDIA [Concomitant]
  4. MOXONIDINE (MOXONIDINE) [Concomitant]

REACTIONS (3)
  - ANGINA PECTORIS [None]
  - CYANOSIS [None]
  - PARAESTHESIA [None]
